FAERS Safety Report 8077620-9 (Version None)
Quarter: 2012Q1

REPORT INFORMATION
  Report Type: 
  Country: None (occurrence: None)
  Receive Date: 20120127
  Receipt Date: 20120125
  Transmission Date: 20120608
  Serious: Yes (Life-Threatening, Hospitalization)
  Sender: FDA-Public Use
  Company Number: US-US-EMD SERONO, INC.-7064414

PATIENT
  Sex: Female
  Weight: 79 kg

DRUGS (2)
  1. REBIF [Suspect]
     Indication: MULTIPLE SCLEROSIS
     Route: 058
     Dates: start: 20050628
  2. REBIF [Suspect]
     Route: 058
     Dates: start: 20070801

REACTIONS (10)
  - BLOOD CHOLESTEROL INCREASED [None]
  - MULTIPLE SCLEROSIS [None]
  - CHEST WALL MASS [None]
  - SPINAL COMPRESSION FRACTURE [None]
  - FALL [None]
  - PNEUMONIA VIRAL [None]
  - LYMPHOEDEMA [None]
  - BLOOD PRESSURE INCREASED [None]
  - CEREBROVASCULAR ACCIDENT [None]
  - ANURIA [None]
